FAERS Safety Report 7620419-5 (Version None)
Quarter: 2011Q3

REPORT INFORMATION
  Report Type: 
  Country: None (occurrence: None)
  Receive Date: 20110719
  Receipt Date: 20110717
  Transmission Date: 20111222
  Serious: Yes (Death)
  Sender: FDA-Public Use
  Company Number: PHHY2011MX64129

PATIENT
  Sex: Female

DRUGS (2)
  1. EXELON [Suspect]
     Indication: DEMENTIA ALZHEIMER'S TYPE
     Dosage: 1 PATCH  (4.6 MG/ 5 CM^2) DAILY
     Route: 062
     Dates: start: 20110501
  2. NUBRENZA [Concomitant]
     Indication: DEMENTIA ALZHEIMER'S TYPE
     Dosage: 1 DF, DAILY
     Route: 062
     Dates: start: 20110501

REACTIONS (2)
  - APPLICATION SITE RASH [None]
  - DRUG HYPERSENSITIVITY [None]
